FAERS Safety Report 21642748 (Version 1)
Quarter: 2022Q4

REPORT INFORMATION
  Report Type: Spontaneous
  Country: GB (occurrence: GB)
  Receive Date: 20221125
  Receipt Date: 20221125
  Transmission Date: 20230113
  Serious: Yes (Other)
  Sender: FDA-Public Use
  Company Number: None

PATIENT
  Age: 59 Year
  Sex: Female
  Weight: 55 kg

DRUGS (5)
  1. ATORVASTATIN [Suspect]
     Active Substance: ATORVASTATIN
     Indication: Hypercholesterolaemia
     Dosage: TAKE ONE EACH NIGHT (TO HELP REDUCE CHOLESTEROL...
     Dates: start: 20210709, end: 20221114
  2. ATORVASTATIN [Suspect]
     Active Substance: ATORVASTATIN
     Dates: start: 20221114
  3. ATORVASTATIN [Suspect]
     Active Substance: ATORVASTATIN
     Dates: start: 20221114
  4. GABAPENTIN. [Concomitant]
     Indication: Ill-defined disorder
     Dosage: TWO TO BE TAKEN THREE TIMES A DAY
     Dates: start: 20211026
  5. PRAVASTATIN [Concomitant]
     Active Substance: PRAVASTATIN
     Indication: Ill-defined disorder
     Dosage: TAKE ONE AT NIGHT
     Dates: start: 20221114

REACTIONS (1)
  - Swollen tongue [Recovered/Resolved]

NARRATIVE: CASE EVENT DATE: 20221114
